FAERS Safety Report 6391695-4 (Version None)
Quarter: 2009Q4

REPORT INFORMATION
  Report Type: 
  Country: None (occurrence: None)
  Receive Date: 20091007
  Receipt Date: 20090729
  Transmission Date: 20100525
  Serious: No
  Sender: FDA-Public Use
  Company Number: US-BAYER-200829907NA

PATIENT
  Age: 23 Year
  Sex: Female
  Weight: 102 kg

DRUGS (2)
  1. MIRENA [Suspect]
     Indication: CONTRACEPTION
     Dosage: 20 UG/DAY CONTINUOUS
     Route: 015
     Dates: start: 20080701
  2. MIRENA [Suspect]
     Dosage: 20 UG/DAY CONTINUOUS
     Route: 015
     Dates: start: 20071101, end: 20080601

REACTIONS (7)
  - ABDOMINAL DISTENSION [None]
  - FATIGUE [None]
  - FEELING ABNORMAL [None]
  - MOOD ALTERED [None]
  - VAGINAL HAEMORRHAGE [None]
  - VULVOVAGINAL MYCOTIC INFECTION [None]
  - WEIGHT INCREASED [None]
